FAERS Safety Report 6643200-2 (Version None)
Quarter: 2010Q1

REPORT INFORMATION
  Report Type: 
  Country: None (occurrence: None)
  Receive Date: 20100319
  Receipt Date: 20100315
  Transmission Date: 20100710
  Serious: Yes (Life-Threatening, Other)
  Sender: FDA-Public Use
  Company Number: PHEH2010US03116

PATIENT

DRUGS (5)
  1. VALTURNA [Suspect]
     Dosage: 150/160 MG
     Dates: start: 20100309
  2. CLONIDINE [Concomitant]
  3. ATENOLOL [Concomitant]
  4. LOTENSIN [Concomitant]
  5. DIOVAN [Concomitant]

REACTIONS (8)
  - BLOOD PRESSURE SYSTOLIC DECREASED [None]
  - CATARACT OPERATION [None]
  - CHOKING [None]
  - EAR DISORDER [None]
  - EYE DISORDER [None]
  - FEELING ABNORMAL [None]
  - HEART RATE DECREASED [None]
  - LIMB DISCOMFORT [None]
